FAERS Safety Report 10580533 (Version 1)
Quarter: 2014Q4

REPORT INFORMATION
  Report Type: Spontaneous
  Country: NO (occurrence: NO)
  Receive Date: 20141113
  Receipt Date: 20141113
  Transmission Date: 20150529
  Serious: Yes (Disabling)
  Sender: FDA-Public Use
  Company Number: NO-PFIZER INC-2014308905

PATIENT
  Age: 65 Year
  Sex: Male

DRUGS (2)
  1. LIPITOR [Suspect]
     Active Substance: ATORVASTATIN CALCIUM
     Indication: HYPERLIPIDAEMIA
     Dosage: 40 MG, 1X/DAY
     Route: 048
     Dates: start: 20091119, end: 20131112
  2. ENALAPRIL COMP RATIOPHARM [Concomitant]
     Active Substance: ENALAPRIL
     Indication: HYPERTENSION
     Dosage: 20 MG/12.5 MG
     Route: 048
     Dates: start: 20100525

REACTIONS (1)
  - Immune-mediated necrotising myopathy [Recovering/Resolving]

NARRATIVE: CASE EVENT DATE: 201305
